FAERS Safety Report 9797074 (Version 2)
Quarter: 2014Q1

REPORT INFORMATION
  Report Type: Spontaneous
  Country: US (occurrence: US)
  Receive Date: 20140105
  Receipt Date: 20140210
  Transmission Date: 20141002
  Serious: Yes (Hospitalization)
  Sender: FDA-Public Use
  Company Number: US-PFIZER INC-2014001124

PATIENT
  Age: 70 Year
  Sex: Female

DRUGS (1)
  1. REVATIO [Suspect]
     Dosage: 20 MG, UNK
     Dates: start: 20110518

REACTIONS (1)
  - Malaise [Unknown]
